FAERS Safety Report 8225821-9 (Version None)
Quarter: 2012Q1

REPORT INFORMATION
  Report Type: 
  Country: None (occurrence: None)
  Receive Date: 20120321
  Receipt Date: 20120314
  Transmission Date: 20120608
  Serious: Yes (Other)
  Sender: FDA-Public Use
  Company Number: CA-ROCHE-1049350

PATIENT
  Sex: Male
  Weight: 101.7 kg

DRUGS (3)
  1. VALPROIC ACID [Concomitant]
  2. AVASTIN [Suspect]
     Indication: GLIOBLASTOMA MULTIFORME
     Route: 042
     Dates: start: 20120207
  3. VITAMINS + MINERALS [Concomitant]

REACTIONS (2)
  - GAIT DISTURBANCE [None]
  - ASTHENIA [None]
